FAERS Safety Report 22527902 (Version 1)
Quarter: 2023Q2

REPORT INFORMATION
  Report Type: Spontaneous
  Country: BY (occurrence: BY)
  Receive Date: 20230606
  Receipt Date: 20230606
  Transmission Date: 20230722
  Serious: Yes (Hospitalization, Other)
  Sender: FDA-Public Use
  Company Number: BY-BAYER-2023A078927

PATIENT
  Age: 57 Year
  Sex: Female
  Weight: 84.984 kg

DRUGS (4)
  1. XARELTO [Suspect]
     Active Substance: RIVAROXABAN
     Indication: Venous thrombosis
     Dosage: 15 MG, BID
     Route: 048
     Dates: start: 20230203, end: 20230224
  2. XARELTO [Suspect]
     Active Substance: RIVAROXABAN
     Indication: Venous thrombosis
     Dosage: 20 MG, QD
     Route: 048
     Dates: start: 20230224
  3. CALCEMIN [Concomitant]
     Active Substance: BORON\PREVITAMIN D3\ZINC
     Indication: Ankle fracture
     Dosage: 1 DF, BID
     Route: 048
     Dates: start: 20230113, end: 20230203
  4. DIOSMIN\HESPERIDIN [Concomitant]
     Active Substance: DIOSMIN\HESPERIDIN
     Indication: Ankle fracture
     Dosage: 1000 MG, QD
     Route: 048
     Dates: start: 20230113, end: 20230203

REACTIONS (4)
  - Thrombophlebitis [Unknown]
  - Postmenopausal haemorrhage [Unknown]
  - Uterine dilation and curettage [Unknown]
  - Hysterectomy [Unknown]

NARRATIVE: CASE EVENT DATE: 20230203
